FAERS Safety Report 6142914-0 (Version None)
Quarter: 2009Q2

REPORT INFORMATION
  Report Type: 
  Country: None (occurrence: None)
  Receive Date: 20090403
  Receipt Date: 20090326
  Transmission Date: 20091009
  Serious: Yes (Death)
  Sender: FDA-Public Use
  Company Number: GB-TEVA-189496ISR

PATIENT
  Age: 89 Year
  Sex: Male
  Weight: 54 kg

DRUGS (2)
  1. NAPROXEN [Suspect]
     Indication: ANALGESIA
     Route: 048
     Dates: end: 20080601
  2. ZOLEDRONIC ACID [Suspect]
     Indication: OSTEITIS DEFORMANS
     Route: 042
     Dates: start: 20080605, end: 20080605

REACTIONS (6)
  - BLOOD CREATININE INCREASED [None]
  - BODY TEMPERATURE INCREASED [None]
  - DEHYDRATION [None]
  - HEART RATE INCREASED [None]
  - LOWER RESPIRATORY TRACT INFECTION [None]
  - RENAL FAILURE ACUTE [None]
